APPROVED DRUG PRODUCT: VICODIN
Active Ingredient: ACETAMINOPHEN; HYDROCODONE BITARTRATE
Strength: 500MG;5MG
Dosage Form/Route: TABLET;ORAL
Application: A085667 | Product #001
Applicant: ABBOTT LABORATORIES PHARMACEUTICAL PRODUCTS DIV
Approved: Approved Prior to Jan 1, 1982 | RLD: No | RS: No | Type: DISCN